FAERS Safety Report 5885301-2 (Version None)
Quarter: 2008Q3

REPORT INFORMATION
  Report Type: 
  Country: None (occurrence: None)
  Receive Date: 20080916
  Receipt Date: 20080905
  Transmission Date: 20090109
  Serious: Yes (Other)
  Sender: FDA-Public Use
  Company Number: RS-NOVOPROD-278804

PATIENT
  Sex: Female

DRUGS (4)
  1. NORDITROPIN NORDILET [Suspect]
     Indication: GROWTH HORMONE DEFICIENCY
     Dosage: .9 MG, QD
     Route: 058
     Dates: start: 20060504, end: 20070220
  2. NORDITROPIN NORDILET [Suspect]
     Dosage: .9 MG, QD
     Route: 058
     Dates: start: 20070925
  3. LEVOTHYROXINE SODIUM [Concomitant]
     Dosage: 50 UG, QD
     Route: 048
     Dates: start: 20050119
  4. HYDROCORTICONE [Concomitant]
     Dosage: 10 MG, QD
     Route: 048
     Dates: start: 20050119

REACTIONS (1)
  - RECURRENT CANCER [None]
